FAERS Safety Report 12510563 (Version 3)
Quarter: 2016Q3

REPORT INFORMATION
  Report Type: Spontaneous
  Country: US (occurrence: US)
  Receive Date: 20160629
  Receipt Date: 20160913
  Transmission Date: 20161109
  Serious: No
  Sender: FDA-Public Use
  Company Number: US-RECKITT BENCKISER HEALTHCARE INT LIMITED-RB-81089-2016

PATIENT
  Age: 71 Year
  Sex: Male

DRUGS (1)
  1. MUCINEX [Suspect]
     Active Substance: GUAIFENESIN
     Dosage: 2 DF, BID
     Route: 065
     Dates: start: 20160109

REACTIONS (2)
  - Expired product administered [Unknown]
  - Medication residue present [Unknown]

NARRATIVE: CASE EVENT DATE: 201601
